FAERS Safety Report 21766253 (Version 4)
Quarter: 2023Q1

REPORT INFORMATION
  Report Type: Spontaneous
  Country: US (occurrence: US)
  Receive Date: 20221222
  Receipt Date: 20230228
  Transmission Date: 20230418
  Serious: Yes (Other)
  Sender: FDA-Public Use
  Company Number: US-VERTEX PHARMACEUTICALS-2022-018556

PATIENT
  Sex: Female

DRUGS (15)
  1. TRIKAFTA [Suspect]
     Active Substance: ELEXACAFTOR\IVACAFTOR\TEZACAFTOR
     Indication: Cystic fibrosis
     Dosage: 2 ORANGE TABS AM AND 1 BLUE TAB PM
     Route: 048
     Dates: start: 20220805
  2. TRIKAFTA [Suspect]
     Active Substance: ELEXACAFTOR\IVACAFTOR\TEZACAFTOR
     Dosage: UNK FREQ
     Route: 048
  3. TYLENOL [Suspect]
     Active Substance: ACETAMINOPHEN
     Indication: Stress fracture
     Dosage: UNK, TID
     Route: 065
     Dates: start: 2022, end: 2022
  4. ALEVE [Suspect]
     Active Substance: NAPROXEN SODIUM
     Indication: Stress fracture
     Dosage: 220 MG, TID
     Route: 065
     Dates: start: 2022, end: 2022
  5. BUDESONIDE [Concomitant]
     Active Substance: BUDESONIDE
  6. ROSUVASTATIN CALCIUM [Concomitant]
     Active Substance: ROSUVASTATIN CALCIUM
  7. IPRATROPIUM BROMIDE [Concomitant]
     Active Substance: IPRATROPIUM BROMIDE
  8. AZELASTINE HYDROCHLORIDE [Concomitant]
     Active Substance: AZELASTINE HYDROCHLORIDE
  9. ANORO ELLIPTA [Concomitant]
     Active Substance: UMECLIDINIUM BROMIDE\VILANTEROL TRIFENATATE
  10. ACYCLOVIR [Concomitant]
     Active Substance: ACYCLOVIR
  11. GLUCOSAMINE SULFATE [Concomitant]
     Active Substance: GLUCOSAMINE SULFATE
  12. VITAMIN B12 [Concomitant]
     Active Substance: CYANOCOBALAMIN
  13. CLARITIN [Concomitant]
     Active Substance: LORATADINE
  14. BROMELAINS [Concomitant]
     Active Substance: BROMELAINS
  15. RECLAST [Concomitant]
     Active Substance: ZOLEDRONIC ACID

REACTIONS (18)
  - Hepatic enzyme increased [Unknown]
  - Headache [Recovering/Resolving]
  - Diarrhoea [Recovered/Resolved]
  - Spinal fracture [Unknown]
  - Stress fracture [Not Recovered/Not Resolved]
  - Pyrexia [Recovered/Resolved]
  - Nausea [Recovering/Resolving]
  - Dehydration [Recovering/Resolving]
  - Gastrointestinal disorder [Not Recovered/Not Resolved]
  - Decreased appetite [Recovering/Resolving]
  - Pain [Not Recovered/Not Resolved]
  - Musculoskeletal disorder [Not Recovered/Not Resolved]
  - Gastroenteritis viral [Unknown]
  - Illness [Not Recovered/Not Resolved]
  - Overdose [Unknown]
  - Toothache [Unknown]
  - Blood sodium decreased [Unknown]
  - Vomiting [Unknown]

NARRATIVE: CASE EVENT DATE: 20220101
